FAERS Safety Report 25755604 (Version 1)
Quarter: 2025Q3

REPORT INFORMATION
  Report Type: Spontaneous
  Country: JP (occurrence: JP)
  Receive Date: 20250903
  Receipt Date: 20250903
  Transmission Date: 20251021
  Serious: Yes (Death, Other)
  Sender: JAZZ
  Company Number: JP-JAZZ PHARMACEUTICALS-2024-JP-021411

PATIENT
  Age: 65 Year
  Sex: Female

DRUGS (3)
  1. VYXEOS [Suspect]
     Active Substance: CYTARABINE\DAUNORUBICIN
     Indication: Acute myeloid leukaemia
     Dates: start: 20241007, end: 20241011
  2. VYXEOS [Suspect]
     Active Substance: CYTARABINE\DAUNORUBICIN
  3. CYTARABINE [Suspect]
     Active Substance: CYTARABINE
     Indication: Product used for unknown indication

REACTIONS (6)
  - Death [Fatal]
  - Febrile neutropenia [Unknown]
  - Platelet count decreased [Unknown]
  - Corynebacterium bacteraemia [Recovered/Resolved]
  - Citrobacter infection [Recovered/Resolved]
  - Drug ineffective [Recovered/Resolved]

NARRATIVE: CASE EVENT DATE: 20240101
